FAERS Safety Report 20568707 (Version 1)
Quarter: 2022Q1

REPORT INFORMATION
  Report Type: Spontaneous
  Country: US (occurrence: US)
  Receive Date: 20220308
  Receipt Date: 20220308
  Transmission Date: 20220423
  Serious: No
  Sender: FDA-Public Use
  Company Number: US-PFIZER INC-202100922266

PATIENT
  Age: 65 Year
  Sex: Female
  Weight: 97.97 kg

DRUGS (2)
  1. XELJANZ [Suspect]
     Active Substance: TOFACITINIB CITRATE
     Indication: Rheumatoid arthritis
     Dosage: 5 MG (IN MORNING AND BEFORE BED TIME)
     Route: 048
     Dates: start: 202101
  2. LETROZOLE [Concomitant]
     Active Substance: LETROZOLE
     Dosage: 2.5 MG

REACTIONS (1)
  - Arthralgia [Not Recovered/Not Resolved]
